FAERS Safety Report 19588716 (Version 2)
Quarter: 2021Q3

REPORT INFORMATION
  Report Type: Report from Study
  Country: CO (occurrence: CO)
  Receive Date: 20210721
  Receipt Date: 20210810
  Transmission Date: 20211014
  Serious: Yes (Hospitalization, Other)
  Sender: FDA-Public Use
  Company Number: CO-INCYTE CORPORATION-2019IN003055

PATIENT

DRUGS (2)
  1. JAKAVI [Suspect]
     Active Substance: RUXOLITINIB
     Indication: POLYCYTHAEMIA VERA
     Dosage: 20 MG, QD
     Route: 048
  2. JAKAVI [Suspect]
     Active Substance: RUXOLITINIB
     Dosage: 30 MG, QD
     Route: 048

REACTIONS (6)
  - Coronavirus infection [Unknown]
  - Decreased immune responsiveness [Unknown]
  - Skin cancer [Unknown]
  - Bone cancer [Recovering/Resolving]
  - Inappropriate schedule of product administration [Unknown]
  - Second primary malignancy [Recovering/Resolving]
